FAERS Safety Report 8771680 (Version 8)
Quarter: 2013Q3

REPORT INFORMATION
  Report Type: Spontaneous
  Country: US (occurrence: US)
  Receive Date: 20120906
  Receipt Date: 20130819
  Transmission Date: 20140515
  Serious: Yes (Hospitalization, Disabling, Other)
  Sender: FDA-Public Use
  Company Number: US-MERCK-1208USA012086

PATIENT
  Sex: Female
  Weight: 83.45 kg

DRUGS (18)
  1. FOSAMAX [Suspect]
     Indication: OSTEOPOROSIS
     Dosage: 70 MG, QW
     Route: 048
     Dates: start: 200108, end: 200611
  2. FOSAMAX [Suspect]
     Indication: OSTEOPENIA
     Dosage: 70 MG, QW
     Route: 048
     Dates: start: 200706, end: 200801
  3. ALENDRONATE SODIUM [Suspect]
     Indication: OSTEOPENIA
     Dosage: 70 MG, QW
     Route: 048
     Dates: start: 20050302, end: 2010
  4. ALENDRONATE SODIUM [Suspect]
     Indication: OSTEOPOROSIS
  5. LISINOPRIL [Concomitant]
     Indication: HYPERTENSION
     Dosage: UNK
     Dates: start: 1995
  6. PLAQUENIL [Concomitant]
     Indication: RHEUMATOID ARTHRITIS
     Dosage: 200 MG, QD
     Dates: start: 1994
  7. PREDNISONE [Concomitant]
     Indication: RHEUMATOID ARTHRITIS
     Dosage: 5 MG, QD
     Dates: start: 1994
  8. IMURAN (AZATHIOPRINE) [Concomitant]
     Indication: RHEUMATOID ARTHRITIS
     Dosage: 50 MG, QD
     Dates: start: 1995, end: 201211
  9. PRILOSEC [Concomitant]
     Indication: GASTROOESOPHAGEAL REFLUX DISEASE
     Dosage: UNK
     Dates: start: 1998, end: 2007
  10. ACIPHEX [Concomitant]
     Indication: GASTROOESOPHAGEAL REFLUX DISEASE
     Dosage: 20 MG, QD
     Dates: start: 2003, end: 2007
  11. ZANTAC [Concomitant]
     Indication: GASTROOESOPHAGEAL REFLUX DISEASE
     Dosage: UNK
     Dates: start: 2006
  12. K-DUR [Concomitant]
     Dosage: 20 MEQ, QD
     Route: 048
  13. ELAVIL (MADE BY MERCK, MARKETED BY ZENECA) [Concomitant]
     Dosage: 25 MG, HS
     Route: 048
  14. MENEST [Concomitant]
     Dosage: 0.625 MG, QD
  15. PROVERA [Concomitant]
     Dosage: 2.5 MG, QD
  16. LOTENSIN (CAPTOPRIL) [Concomitant]
  17. MOTRIN [Concomitant]
     Dosage: 800 MG, TID
  18. INFLUENZA VIRUS VACCINE INACTIVATED (UNSPECIFIED) [Concomitant]
     Dosage: 0.5 ML, ONCE
     Route: 030
     Dates: start: 20021205

REACTIONS (13)
  - Femur fracture [Unknown]
  - Intramedullary rod insertion [Unknown]
  - Osteoporosis [Unknown]
  - Cholecystectomy [Unknown]
  - Renal failure acute [Recovered/Resolved]
  - Femur fracture [Unknown]
  - Blood cholesterol increased [Not Recovered/Not Resolved]
  - Diabetes mellitus [Not Recovered/Not Resolved]
  - Middle ear disorder [Unknown]
  - Salivary gland neoplasm [Unknown]
  - Vulvovaginal mycotic infection [Unknown]
  - Anaemia postoperative [Unknown]
  - Delusion [Unknown]
